FAERS Safety Report 7606031-2 (Version None)
Quarter: 2011Q3

REPORT INFORMATION
  Report Type: 
  Country: None (occurrence: None)
  Receive Date: 20110713
  Receipt Date: 20110705
  Transmission Date: 20111222
  Serious: Yes (Hospitalization)
  Sender: FDA-Public Use
  Company Number: PHHY2011FR60757

PATIENT
  Sex: Male

DRUGS (3)
  1. AZILECT [Suspect]
     Indication: PARKINSON'S DISEASE
     Dosage: 1 MG, QD
     Route: 048
     Dates: start: 20100801, end: 20110313
  2. EXELON [Suspect]
     Indication: DEMENTIA
     Dosage: 6 MG, BID
     Route: 048
     Dates: start: 20100101
  3. MODOPAR [Suspect]
     Indication: PARKINSON'S DISEASE
     Dosage: 1750 MG, PER DAY
     Route: 048
     Dates: start: 20090101

REACTIONS (7)
  - DERMATITIS BULLOUS [None]
  - PEMPHIGOID [None]
  - BLISTER [None]
  - EOSINOPHILIA [None]
  - ERYTHEMA [None]
  - PRURITUS [None]
  - SKIN EROSION [None]
